FAERS Safety Report 5094469-X (Version None)
Quarter: 2006Q3

REPORT INFORMATION
  Report Type: 
  Country: None (occurrence: None)
  Receive Date: 20060831
  Receipt Date: 20060426
  Transmission Date: 20061208
  Serious: Yes (Hospitalization)
  Sender: FDA-Public Use
  Company Number: DE-ABBOTT-06P-062-0331911-00

PATIENT
  Sex: Female

DRUGS (4)
  1. HUMIRA [Suspect]
     Indication: RHEUMATOID ARTHRITIS
     Route: 058
     Dates: start: 20060412
  2. HUMIRA [Suspect]
     Route: 058
     Dates: start: 20050401, end: 20051201
  3. ANALGESICS [Concomitant]
     Indication: RHEUMATOID ARTHRITIS
  4. NON-STEROIDAL ANTI-RHEUMATIC [Concomitant]
     Indication: RHEUMATOID ARTHRITIS

REACTIONS (1)
  - FOOT FRACTURE [None]
